FAERS Safety Report 6333257-0 (Version None)
Quarter: 2009Q3

REPORT INFORMATION
  Report Type: 
  Country: None (occurrence: None)
  Receive Date: 20090828
  Receipt Date: 20090820
  Transmission Date: 20100115
  Serious: Yes (Hospitalization)
  Sender: FDA-Public Use
  Company Number: FR-PFIZER INC-2009257246

PATIENT
  Age: 76 Year

DRUGS (10)
  1. TAHOR [Suspect]
     Indication: HYPERCHOLESTEROLAEMIA
     Dosage: 20 MG, 1X/DAY
     Route: 048
     Dates: end: 20090722
  2. SIFROL [Suspect]
     Indication: RESTLESS LEGS SYNDROME
     Dosage: 0.18 MG, 2X/DAY
     Route: 048
     Dates: end: 20090722
  3. EUPRESSYL [Suspect]
     Indication: HYPERTENSION
     Dosage: 60 MG, 2X/DAY
     Dates: end: 20090722
  4. EFFERALGAN CODEINE [Suspect]
     Dosage: UNK
     Route: 048
     Dates: end: 20090722
  5. INIPOMP [Suspect]
     Dosage: 20 MG, 1X/DAY
     Route: 048
     Dates: end: 20090722
  6. LEVOTHYROX [Concomitant]
     Dosage: 75 UG, 1X/DAY
  7. TAREG [Concomitant]
     Dosage: 160 MG, 1X/DAY
  8. SPIRIVA [Concomitant]
     Dosage: UNK
  9. BUDESONIDE [Concomitant]
     Dosage: UNK
  10. FORLAX [Concomitant]
     Dosage: UNK

REACTIONS (3)
  - HEADACHE [None]
  - MENTAL IMPAIRMENT [None]
  - NAUSEA [None]
